FAERS Safety Report 8613121-4 (Version None)
Quarter: 2012Q3

REPORT INFORMATION
  Report Type: 
  Country: None (occurrence: None)
  Receive Date: 20120822
  Receipt Date: 20120730
  Transmission Date: 20120928
  Serious: Yes (Other)
  Sender: FDA-Public Use
  Company Number: GB-MERCK-1208GBR002068

PATIENT

DRUGS (1)
  1. SINEMET [Suspect]
     Dosage: UNK
     Route: 048

REACTIONS (1)
  - GASTROINTESTINAL SURGERY [None]
